FAERS Safety Report 6550017-6 (Version None)
Quarter: 2010Q1

REPORT INFORMATION
  Report Type: 
  Country: None (occurrence: None)
  Receive Date: 20100125
  Receipt Date: 20100113
  Transmission Date: 20100710
  Serious: Yes (Other)
  Sender: FDA-Public Use
  Company Number: CHPA2010US01189

PATIENT

DRUGS (1)
  1. VOLTAREN [Suspect]
     Dosage: UNK, UNK

REACTIONS (2)
  - INCORRECT DOSE ADMINISTERED [None]
  - RENAL IMPAIRMENT [None]
